FAERS Safety Report 23786285 (Version 2)
Quarter: 2024Q2

REPORT INFORMATION
  Report Type: Other
  Country: CN (occurrence: CN)
  Receive Date: 20240426
  Receipt Date: 20240506
  Transmission Date: 20240716
  Serious: Yes (Death, Hospitalization)
  Sender: FDA-Public Use
  Company Number: CN-ALVOGEN-2024094490

PATIENT
  Age: 65 Year
  Sex: Female

DRUGS (14)
  1. DEXAMETHASONE [Suspect]
     Active Substance: DEXAMETHASONE
     Indication: Plasma cell myeloma
     Dosage: 3 CYCLES OF VD (BORTEZOMIB PLUS DEXAMETHASONE)
     Dates: start: 201907
  2. DEXAMETHASONE [Suspect]
     Active Substance: DEXAMETHASONE
     Indication: Plasma cell myeloma
     Dosage: 3 CYCLES OF VRD (BORTEZOMIB PLUS LENALIDOMIDE AND DEXAMETHASONE)
     Dates: start: 201911
  3. DEXAMETHASONE [Suspect]
     Active Substance: DEXAMETHASONE
     Indication: Plasma cell myeloma
     Dosage: 2 CYCLES OF DID (DARATUMUMAB PLUS IXAZOMIB AND DEXAMETHASONE)
     Dates: start: 202004
  4. DEXAMETHASONE [Suspect]
     Active Substance: DEXAMETHASONE
     Indication: Plasma cell myeloma
     Dosage: 2 CYCLES OF DID (DARATUMUMAB PLUS IXAZOMIB AND DEXAMETHASONE)
     Dates: start: 202007
  5. DEXAMETHASONE [Suspect]
     Active Substance: DEXAMETHASONE
     Indication: Plasma cell myeloma
     Dosage: 2 CYCLES OF BRD (BENDAMUSTINE PLUS LENALIDOMIDE AND DEXAMETHASONE)
     Dates: start: 202011
  6. LENALIDOMIDE [Suspect]
     Active Substance: LENALIDOMIDE
     Indication: Plasma cell myeloma
     Dosage: UNKNOWN DOSE WITH BORTEZOMIB AND DEXAMETHASONE; 3 CYCLES
     Dates: start: 201911
  7. LENALIDOMIDE [Suspect]
     Active Substance: LENALIDOMIDE
     Indication: Plasma cell myeloma
     Dosage: UNKNOWN DOSE WITH BENDAMUSTINE AND DEXAMETHASONE; 2 CYCLES
     Dates: start: 202011
  8. BORTEZOMIB [Suspect]
     Active Substance: BORTEZOMIB
     Indication: Plasma cell myeloma
     Dosage: 3 CYCLES WITH BORTEZOMIB, AND DEXAMETHASONE
     Dates: start: 201907
  9. BORTEZOMIB [Suspect]
     Active Substance: BORTEZOMIB
     Indication: Plasma cell myeloma
     Dosage: 3 CYCLES WITH BORTEZOMIB, PLUS LENALIDOMIDE AND DEXAMETHASONE
     Dates: start: 201911
  10. DARATUMUMAB [Suspect]
     Active Substance: DARATUMUMAB
     Indication: Plasma cell myeloma
     Dosage: 2 CYCLES OF DID (DARATUMUMAB PLUS IXAZOMIB AND DEXAMETHASONE;)
     Dates: start: 202004
  11. DARATUMUMAB [Suspect]
     Active Substance: DARATUMUMAB
     Indication: Plasma cell myeloma
     Dosage: 2 CYCLES OF DID (DARATUMUMAB PLUS IXAZOMIB AND DEXAMETHASONE;)
     Dates: start: 202007
  12. IXAZOMIB [Suspect]
     Active Substance: IXAZOMIB
     Indication: Plasma cell myeloma
     Dosage: 2 CYCLES OF DID (DARATUMUMAB PLUS IXAZOMIB AND DEXAMETHASONE;)
     Dates: start: 202004
  13. IXAZOMIB [Suspect]
     Active Substance: IXAZOMIB
     Indication: Plasma cell myeloma
     Dosage: 2 CYCLES OF DID (DARATUMUMAB PLUS IXAZOMIB AND DEXAMETHASONE;)
     Dates: start: 202007
  14. BENDAMUSTINE [Suspect]
     Active Substance: BENDAMUSTINE
     Indication: Plasma cell myeloma
     Dosage: 2 CYCLES OF BENDAMUSTINE PLUS LENALIDOMIDE AND DEXAMETHASONE
     Dates: start: 202011

REACTIONS (2)
  - Interstitial lung disease [Fatal]
  - Respiratory failure [Fatal]

NARRATIVE: CASE EVENT DATE: 20210301
